FAERS Safety Report 23985564 (Version 2)
Quarter: 2024Q4

REPORT INFORMATION
  Report Type: Spontaneous
  Country: DE (occurrence: US)
  Receive Date: 20240618
  Receipt Date: 20241123
  Transmission Date: 20250115
  Serious: Yes (Death, Other)
  Sender: AMGEN
  Company Number: DE-AMGEN-USASP2024119424

PATIENT

DRUGS (3)
  1. PREDNISONE [Suspect]
     Active Substance: PREDNISONE
     Indication: Pemphigoid
     Dosage: UNK [1-10 MG (LOW) OR 30-100 MG (MEDIUM-HIGH)]
     Route: 048
  2. RITUXIMAB [Suspect]
     Active Substance: RITUXIMAB
     Indication: Pemphigoid
     Dosage: UNK
     Route: 065
  3. CLOBETASOL PROPIONATE [Suspect]
     Active Substance: CLOBETASOL PROPIONATE
     Indication: Pemphigoid
     Dosage: UNK
     Route: 061

REACTIONS (12)
  - Death [Fatal]
  - Acute myocardial infarction [Unknown]
  - Cerebral infarction [Unknown]
  - Lymphangitis [Unknown]
  - Erysipelas [Unknown]
  - Sepsis [Unknown]
  - Pneumonia [Unknown]
  - Pemphigoid [Unknown]
  - Influenza [Unknown]
  - Urinary tract infection [Unknown]
  - Cellulitis [Unknown]
  - Off label use [Unknown]
